FAERS Safety Report 11087424 (Version 2)
Quarter: 2015Q2

REPORT INFORMATION
  Report Type: Spontaneous
  Country: US (occurrence: US)
  Receive Date: 20150504
  Receipt Date: 20150522
  Transmission Date: 20150821
  Serious: No
  Sender: FDA-Public Use
  Company Number: US-009507513-1504USA021178

PATIENT
  Age: 14 Year
  Sex: Female
  Weight: 87.75 kg

DRUGS (1)
  1. NEXPLANON [Suspect]
     Active Substance: ETONOGESTREL
     Indication: CONTRACEPTION
     Dosage: 68 MG, UNK
     Route: 059
     Dates: start: 201404

REACTIONS (3)
  - Vaginal haemorrhage [Unknown]
  - Medical device complication [Unknown]
  - Device difficult to use [Unknown]

NARRATIVE: CASE EVENT DATE: 201405
